FAERS Safety Report 22666989 (Version 8)
Quarter: 2024Q2

REPORT INFORMATION
  Report Type: Report from Study
  Country: US (occurrence: US)
  Receive Date: 20230704
  Receipt Date: 20240531
  Transmission Date: 20240716
  Serious: No
  Sender: FDA-Public Use
  Company Number: US-ACADIA PHARMACEUTICALS INC.-ACA-2023-TRF-002317

PATIENT
  Age: 14 Year
  Sex: Female

DRUGS (18)
  1. DAYBUE [Suspect]
     Active Substance: TROFINETIDE
     Indication: Rett syndrome
     Dosage: 40 MILLILITER, BID VIA G-TUBE
     Dates: start: 20230516
  2. DAYBUE [Suspect]
     Active Substance: TROFINETIDE
     Dosage: 40 MILLILITER, BID
     Dates: start: 20230530
  3. DAYBUE [Suspect]
     Active Substance: TROFINETIDE
     Dosage: 20 MILLILITER, BID
     Dates: start: 202307
  4. DAYBUE [Suspect]
     Active Substance: TROFINETIDE
     Dosage: 10 MILLILITER, BID, G-TUBE
  5. FOLIC ACID [Concomitant]
     Active Substance: FOLIC ACID
  6. FLONASE [Concomitant]
     Active Substance: FLUTICASONE PROPIONATE
  7. NEXIUM I.V. [Concomitant]
     Active Substance: ESOMEPRAZOLE SODIUM
  8. VALPROIC ACID [Concomitant]
     Active Substance: VALPROIC ACID
  9. MELATONIN [Concomitant]
     Active Substance: MELATONIN
  10. KATE FARMS PEPTIDE [Concomitant]
  11. CLOBAZAM [Concomitant]
     Active Substance: CLOBAZAM
     Dosage: 2.5 MG/ 5 MG
  12. CHILDRENS TYLENOL [Concomitant]
     Active Substance: ACETAMINOPHEN
  13. CETIRIZINE [Concomitant]
     Active Substance: CETIRIZINE HYDROCHLORIDE
  14. VALPROATE [Concomitant]
     Active Substance: VALPROIC ACID
     Dosage: 375 MILLIGRAM, TID
  15. BISACODYL [Concomitant]
     Active Substance: BISACODYL
  16. NEXIUM I.V. [Concomitant]
     Active Substance: ESOMEPRAZOLE SODIUM
     Dosage: 20 MILLIGRAM, BID
  17. MIRALAX [Concomitant]
     Active Substance: POLYETHYLENE GLYCOL 3350
     Dosage: 17 GRAM, QD
  18. ERYTHROMYCIN [Concomitant]
     Active Substance: ERYTHROMYCIN
     Dosage: 70 MILLIGRAM, QID

REACTIONS (8)
  - Prescribed underdose [Not Recovered/Not Resolved]
  - Drooling [Not Recovered/Not Resolved]
  - Gastroenteritis viral [Recovered/Resolved]
  - Diarrhoea [Not Recovered/Not Resolved]
  - Diarrhoea [Not Recovered/Not Resolved]
  - Diarrhoea [Not Recovered/Not Resolved]
  - Diarrhoea [Recovering/Resolving]
  - Vomiting [Recovered/Resolved]

NARRATIVE: CASE EVENT DATE: 20230519
